FAERS Safety Report 5062312-0 (Version None)
Quarter: 2006Q3

REPORT INFORMATION
  Report Type: 
  Country: None (occurrence: None)
  Receive Date: 20060703
  Receipt Date: 20051209
  Transmission Date: 20061208
  Serious: No
  Sender: FDA-Public Use
  Company Number: 2005S1011838

PATIENT
  Age: 26 Year
  Sex: Female

DRUGS (6)
  1. CLOZAPINE [Suspect]
     Dosage: 200 MG;HS;ORAL
     Route: 048
     Dates: start: 20051201
  2. BENZTROPINE MESYLATE [Concomitant]
  3. VALPROATE SODIUM [Concomitant]
  4. HALOPERIDOL [Concomitant]
  5. LORAZEPAM [Concomitant]
  6. PANTOPRAZOLE SODIUM [Concomitant]

REACTIONS (1)
  - GRANULOCYTOPENIA [None]
